FAERS Safety Report 4278565-2 (Version None)
Quarter: 2004Q1

REPORT INFORMATION
  Report Type: 
  Country: None (occurrence: None)
  Receive Date: 20040122
  Receipt Date: 20040106
  Transmission Date: 20041129
  Serious: Yes (Hospitalization)
  Sender: FDA-Public Use
  Company Number: 2004-111614-NL

PATIENT
  Age: 67 Year
  Sex: Female

DRUGS (5)
  1. MIRTAZAPINE [Suspect]
     Indication: DEPRESSION
     Dosage: DF
     Dates: start: 20030920
  2. TRIAL MEDICATION OR PLACEBO (NOVARTIS) [Suspect]
     Indication: ASTHMA
     Dosage: DF
     Dates: start: 20030204
  3. SALMETEROL XINAFOATE [Concomitant]
  4. FLUTICASONE PROPIONATE [Concomitant]
  5. AMLODIPINE BESYLATE [Concomitant]

REACTIONS (3)
  - ARRHYTHMIA [None]
  - ATRIOVENTRICULAR BLOCK SECOND DEGREE [None]
  - CHEST PAIN [None]
